FAERS Safety Report 7795479-1 (Version None)
Quarter: 2011Q4

REPORT INFORMATION
  Report Type: 
  Country: None (occurrence: None)
  Receive Date: 20111004
  Receipt Date: 20110930
  Transmission Date: 20120403
  Serious: Yes (Hospitalization)
  Sender: FDA-Public Use
  Company Number: US-MERCK-1104USA02077

PATIENT
  Age: 50 Year
  Sex: Female
  Weight: 63 kg

DRUGS (4)
  1. FOSAMAX [Suspect]
     Indication: OSTEOPENIA
     Route: 048
     Dates: start: 20010101, end: 20100101
  2. FOSAMAX [Suspect]
     Indication: OSTEOPOROSIS
     Route: 048
     Dates: start: 20010101, end: 20100101
  3. ALENDRONATE SODIUM [Suspect]
     Route: 048
     Dates: start: 20080215, end: 20100101
  4. CALCIUM (UNSPECIFIED) [Concomitant]
     Route: 048
     Dates: start: 20000101

REACTIONS (34)
  - PULMONARY INFARCTION [None]
  - BLEPHARITIS [None]
  - GLAUCOMA [None]
  - PANIC ATTACK [None]
  - MAJOR DEPRESSION [None]
  - MENSTRUATION IRREGULAR [None]
  - MUSCLE SPASMS [None]
  - DEPRESSION [None]
  - CERUMEN IMPACTION [None]
  - FUNGAL INFECTION [None]
  - LICHEN SCLEROSUS [None]
  - HERPES ZOSTER [None]
  - FEMUR FRACTURE [None]
  - DEEP VEIN THROMBOSIS [None]
  - HYPERTENSION [None]
  - UTERINE POLYP [None]
  - BREAST ENLARGEMENT [None]
  - NASAL CONGESTION [None]
  - MENOPAUSE [None]
  - FALL [None]
  - COLONIC POLYP [None]
  - BIOPSY [None]
  - GENERALISED ANXIETY DISORDER [None]
  - TINNITUS [None]
  - DYSPAREUNIA [None]
  - CONJUNCTIVITIS [None]
  - EYE INJURY [None]
  - BREAST CALCIFICATIONS [None]
  - HEART RATE IRREGULAR [None]
  - VITAMIN D DEFICIENCY [None]
  - PULMONARY EMBOLISM [None]
  - LACERATION [None]
  - ARTHRALGIA [None]
  - INSOMNIA [None]
